FAERS Safety Report 11022445 (Version 2)
Quarter: 2016Q2

REPORT INFORMATION
  Report Type: Spontaneous
  Country: US (occurrence: US)
  Receive Date: 20150413
  Receipt Date: 20160609
  Transmission Date: 20160815
  Serious: No
  Sender: FDA-Public Use
  Company Number: US-ASTELLAS-2014US010964

PATIENT
  Age: 53 Year
  Sex: Female

DRUGS (3)
  1. PROGRAF [Suspect]
     Active Substance: TACROLIMUS\TACROLIMUS ANHYDROUS
     Indication: LIVER TRANSPLANT
     Route: 048
  2. PROGRAF [Suspect]
     Active Substance: TACROLIMUS\TACROLIMUS ANHYDROUS
     Dosage: 0.5 MG, ONCE DAILY
     Route: 048
  3. PROGRAF [Suspect]
     Active Substance: TACROLIMUS\TACROLIMUS ANHYDROUS
     Route: 048
     Dates: start: 20140819

REACTIONS (6)
  - Migraine [Unknown]
  - Malaise [Unknown]
  - Vomiting [Unknown]
  - Conjunctivitis [Unknown]
  - Abdominal discomfort [Unknown]
  - Chills [Unknown]

NARRATIVE: CASE EVENT DATE: 20140816
